FAERS Safety Report 20251800 (Version 1)
Quarter: 2021Q4

REPORT INFORMATION
  Report Type: Report from Study
  Country: US (occurrence: US)
  Receive Date: 20211229
  Receipt Date: 20211229
  Transmission Date: 20220303
  Serious: No
  Sender: FDA-Public Use
  Company Number: US-CLOVIS ONCOLOGY-CLO-2021-001511

PATIENT
  Sex: Female
  Weight: 57.143 kg

DRUGS (1)
  1. RUBRACA [Suspect]
     Active Substance: RUCAPARIB CAMSYLATE
     Indication: Ovarian cancer
     Dosage: 200 MG (MORNING), 400 MG (EVENING)
     Route: 048
     Dates: start: 20190402

REACTIONS (1)
  - Weight decreased [Unknown]
